FAERS Safety Report 12880983 (Version 1)
Quarter: 2016Q4

REPORT INFORMATION
  Report Type: Spontaneous
  Country: US (occurrence: US)
  Receive Date: 20161024
  Receipt Date: 20161024
  Transmission Date: 20170207
  Serious: No
  Sender: FDA-Public Use
  Company Number: None

PATIENT
  Age: 57 Year
  Sex: Female

DRUGS (1)
  1. SUTENT [Suspect]
     Active Substance: SUNITINIB MALATE
     Indication: GASTRIC CANCER
     Dosage: 12.5 3QD ORAL
     Route: 048
     Dates: start: 20160114

REACTIONS (3)
  - Diarrhoea [None]
  - Haemorrhoids [None]
  - Myalgia [None]

NARRATIVE: CASE EVENT DATE: 20161024
